FAERS Safety Report 9862025 (Version 1)
Quarter: 2014Q1

REPORT INFORMATION
  Report Type: Other
  Country: GB (occurrence: GB)
  Receive Date: 20140203
  Receipt Date: 20140203
  Transmission Date: 20141002
  Serious: Yes (Other)
  Sender: FDA-Public Use
  Company Number: GB-PERRIGO-14GB000829

PATIENT
  Age: 47 Year
  Sex: Female
  Weight: 57.6 kg

DRUGS (2)
  1. IBUPROFEN 16028/0040 400 MG [Suspect]
     Indication: EPICONDYLITIS
     Dosage: 400 MG, TID
     Route: 048
  2. PARACETAMOL [Concomitant]
     Indication: PRODUCT USED FOR UNKNOWN INDICATION
     Dosage: UNK
     Route: 065

REACTIONS (3)
  - Angioedema [Recovered/Resolved]
  - Swelling face [Recovered/Resolved]
  - Eye swelling [Recovered/Resolved]
